FAERS Safety Report 14750305 (Version 2)
Quarter: 2018Q3

REPORT INFORMATION
  Report Type: Spontaneous
  Country: US (occurrence: US)
  Receive Date: 20180412
  Receipt Date: 20180814
  Transmission Date: 20181010
  Serious: Yes (Hospitalization, Congenital Anomaly, Other)
  Sender: FDA-Public Use
  Company Number: US-SUN PHARMACEUTICAL INDUSTRIES LTD-2018US-169795

PATIENT

DRUGS (1)
  1. INDOMETHACIN. [Suspect]
     Active Substance: INDOMETHACIN
     Indication: TOCOLYSIS
     Dosage: UNK
     Route: 064

REACTIONS (7)
  - Tricuspid valve incompetence [Recovering/Resolving]
  - Right atrial dilatation [Recovering/Resolving]
  - Right ventricular hypertension [Recovering/Resolving]
  - Right ventricular dysfunction [Recovering/Resolving]
  - Ductus arteriosus premature closure [Recovered/Resolved]
  - Foetal exposure during pregnancy [Recovered/Resolved with Sequelae]
  - Right ventricular hypertrophy [Recovering/Resolving]
